FAERS Safety Report 10404035 (Version 3)
Quarter: 2015Q1

REPORT INFORMATION
  Report Type: Spontaneous
  Country: BR (occurrence: BR)
  Receive Date: 20140822
  Receipt Date: 20150202
  Transmission Date: 20150720
  Serious: Yes (Other)
  Sender: FDA-Public Use
  Company Number: BR-ABBVIE-14P-020-1275690-00

PATIENT
  Sex: Male
  Weight: 92 kg

DRUGS (6)
  1. SYNTHROID [Suspect]
     Active Substance: LEVOTHYROXINE SODIUM
     Indication: THYROID HORMONE REPLACEMENT THERAPY
     Dosage: IN FASTING (MORNING); DAILY DOSE: 50 MICROGRAM
     Route: 048
     Dates: start: 2004, end: 2006
  2. MOTILIUM [Concomitant]
     Active Substance: DOMPERIDONE
     Indication: DYSPEPSIA
     Dosage: NOT EVERYDAY
     Route: 048
     Dates: start: 201405
  3. OTO-BETNOVATE [Concomitant]
     Indication: EAR DISORDER
     Dates: start: 201406
  4. LANSOPRAZOLE. [Concomitant]
     Active Substance: LANSOPRAZOLE
     Indication: GASTROOESOPHAGEAL REFLUX DISEASE
     Route: 048
     Dates: start: 201406
  5. SCOPOLAMINE BUTYLBROMIDE [Concomitant]
     Active Substance: SCOPOLAMINE
     Indication: ABDOMINAL PAIN
     Dosage: WHEN HAS PAIN
     Route: 048
     Dates: start: 201403
  6. SYNTHROID [Suspect]
     Active Substance: LEVOTHYROXINE SODIUM
     Route: 048
     Dates: end: 20140812

REACTIONS (19)
  - Urethritis [Unknown]
  - Memory impairment [Not Recovered/Not Resolved]
  - Arthropathy [Not Recovered/Not Resolved]
  - Prostatitis [Unknown]
  - Somnolence [Unknown]
  - Visual acuity tests [Recovering/Resolving]
  - Exercise lack of [Unknown]
  - Laryngitis [Not Recovered/Not Resolved]
  - Asthma [Unknown]
  - Pruritus [Not Recovered/Not Resolved]
  - Constipation [Not Recovered/Not Resolved]
  - Urinary tract disorder [Not Recovered/Not Resolved]
  - Dermatitis [Unknown]
  - Hepatic steatosis [Not Recovered/Not Resolved]
  - Ocular hyperaemia [Not Recovered/Not Resolved]
  - Pharyngitis [Not Recovered/Not Resolved]
  - Rheumatoid factor [Not Recovered/Not Resolved]
  - Headache [Recovering/Resolving]
  - Gastrointestinal disorder [Not Recovered/Not Resolved]

NARRATIVE: CASE EVENT DATE: 2005
